FAERS Safety Report 8379250-8 (Version None)
Quarter: 2012Q2

REPORT INFORMATION
  Report Type: 
  Country: None (occurrence: None)
  Receive Date: 20120523
  Receipt Date: 20120515
  Transmission Date: 20120825
  Serious: Yes (Hospitalization)
  Sender: FDA-Public Use
  Company Number: US-US-EMD SERONO, INC.-7132047

PATIENT
  Sex: Male

DRUGS (2)
  1. REBIF [Suspect]
     Route: 058
     Dates: start: 20120513
  2. REBIF [Suspect]
     Indication: PRODUCT USED FOR UNKNOWN INDICATION
     Route: 058
     Dates: start: 20120317

REACTIONS (4)
  - CONVULSION [None]
  - MALAISE [None]
  - DIZZINESS [None]
  - SPEECH DISORDER [None]
